FAERS Safety Report 25748931 (Version 1)
Quarter: 2025Q3

REPORT INFORMATION
  Report Type: Report from Study
  Country: US (occurrence: US)
  Receive Date: 20250902
  Receipt Date: 20250902
  Transmission Date: 20251021
  Serious: No
  Sender: SUNOVION
  Company Number: US-SUMITOMO PHARMA SWITZERLAND GMBH-2025SPA010968

PATIENT
  Age: 76 Year
  Sex: Male

DRUGS (17)
  1. ORGOVYX [Suspect]
     Active Substance: RELUGOLIX
     Indication: Prostate cancer
     Route: 048
  2. ORGOVYX [Suspect]
     Active Substance: RELUGOLIX
     Route: 048
  3. ABIRATERONE [Concomitant]
     Active Substance: ABIRATERONE
  4. LACTOBACILLUS ACIDOPHILUS [Concomitant]
     Active Substance: LACTOBACILLUS ACIDOPHILUS
  5. ALLOPURINOL [Concomitant]
     Active Substance: ALLOPURINOL
  6. BETIMOL [Concomitant]
     Active Substance: TIMOLOL
  7. VITAMINS [Concomitant]
     Active Substance: VITAMINS
  8. VITAMIN D3 [Concomitant]
     Active Substance: CHOLECALCIFEROL
  9. LATANOPROST [Concomitant]
     Active Substance: LATANOPROST
  10. LEVOTHYROXINE [Concomitant]
     Active Substance: LEVOTHYROXINE
  11. LISINOPRIL [Concomitant]
     Active Substance: LISINOPRIL
  12. LUMIGAN [Concomitant]
     Active Substance: BIMATOPROST
  13. MIRTAZAPINE [Concomitant]
     Active Substance: MIRTAZAPINE
  14. PREDNISONE [Concomitant]
     Active Substance: PREDNISONE
  15. ROSUVASTATIN [Concomitant]
     Active Substance: ROSUVASTATIN
  16. ASPIRIN [Concomitant]
     Active Substance: ASPIRIN
  17. COENZYME Q10 [Concomitant]
     Active Substance: DIETARY SUPPLEMENT\UBIDECARENONE

REACTIONS (6)
  - Decreased appetite [Unknown]
  - Brain fog [Unknown]
  - Abdominal pain upper [Unknown]
  - Muscular weakness [Unknown]
  - Weight decreased [Unknown]
  - Blood pressure increased [Unknown]

NARRATIVE: CASE EVENT DATE: 20250821
